FAERS Safety Report 4377341-X (Version None)
Quarter: 2004Q2

REPORT INFORMATION
  Report Type: 
  Country: None (occurrence: None)
  Receive Date: 20040614
  Receipt Date: 20040614
  Transmission Date: 20050107
  Serious: Yes (Life-Threatening)
  Sender: FDA-Public Use
  Company Number: None

PATIENT
  Age: 79 Year
  Sex: Male
  Weight: 68.4 kg

DRUGS (2)
  1. TAXOL [Suspect]
     Indication: METASTASIS
     Dosage: 350 MG INTRAVENOUS
     Route: 042
     Dates: start: 20040512, end: 20040512
  2. TAXOL [Suspect]
     Indication: NON-SMALL CELL LUNG CANCER
     Dosage: 350 MG INTRAVENOUS
     Route: 042
     Dates: start: 20040512, end: 20040512

REACTIONS (6)
  - BLOOD PRESSURE DIASTOLIC INCREASED [None]
  - DYSPNOEA [None]
  - ERYTHEMA [None]
  - HEART RATE INCREASED [None]
  - RESPIRATORY RATE INCREASED [None]
  - RESTLESSNESS [None]
